FAERS Safety Report 14161683 (Version 1)
Quarter: 2017Q4

REPORT INFORMATION
  Report Type: Spontaneous
  Country: US (occurrence: US)
  Receive Date: 20171105
  Receipt Date: 20171105
  Transmission Date: 20180321
  Serious: Yes (Disabling)
  Sender: FDA-Public Use
  Company Number: None

PATIENT
  Sex: Female
  Weight: 111.6 kg

DRUGS (6)
  1. ICE PACK [Concomitant]
  2. HEATING PAD [Concomitant]
  3. TYELENOL [Concomitant]
  4. CIPROFLOXIN [Suspect]
     Active Substance: CIPROFLOXACIN
     Indication: DIVERTICULITIS
     Route: 042
     Dates: start: 20171007, end: 20171010
  5. FIORICET [Concomitant]
     Active Substance: ACETAMINOPHEN\BUTALBITAL\CAFFEINE
  6. MEDROL [Concomitant]
     Active Substance: METHYLPREDNISOLONE

REACTIONS (7)
  - Muscle strain [None]
  - Headache [None]
  - Tendonitis [None]
  - Therapy cessation [None]
  - Pain in extremity [None]
  - Hypoaesthesia [None]
  - Paraesthesia [None]

NARRATIVE: CASE EVENT DATE: 20171013
